FAERS Safety Report 5245099-8 (Version None)
Quarter: 2007Q1

REPORT INFORMATION
  Report Type: 
  Country: None (occurrence: None)
  Receive Date: 20070223
  Receipt Date: 20070215
  Transmission Date: 20070707
  Serious: No
  Sender: FDA-Public Use
  Company Number: US-AVENTIS-200617649US

PATIENT
  Sex: Female
  Weight: 79 kg

DRUGS (1)
  1. ARAVA [Suspect]
     Dates: end: 20060901

REACTIONS (1)
  - DRUG EXPOSURE DURING PREGNANCY [None]
